FAERS Safety Report 25057490 (Version 1)
Quarter: 2025Q1

REPORT INFORMATION
  Report Type: Report from Study
  Country: US (occurrence: US)
  Receive Date: 20250310
  Receipt Date: 20250310
  Transmission Date: 20250409
  Serious: No
  Sender: ACADIA PHARMACEUTICALS
  Company Number: US-ACADIA PHARMACEUTICALS INC.-ACA-2025-TRF-002314

PATIENT
  Age: 2 Year
  Sex: Female

DRUGS (1)
  1. DAYBUE [Suspect]
     Active Substance: TROFINETIDE
     Indication: Product used for unknown indication
     Route: 065

REACTIONS (4)
  - Sleep disorder [Unknown]
  - Aggression [Not Recovered/Not Resolved]
  - Anxiety [Unknown]
  - Incorrect dose administered [Unknown]
